FAERS Safety Report 8556948-X (Version None)
Quarter: 2012Q3

REPORT INFORMATION
  Report Type: 
  Country: None (occurrence: None)
  Receive Date: 20120801
  Receipt Date: 20120727
  Transmission Date: 20120928
  Serious: Yes (Hospitalization)
  Sender: FDA-Public Use
  Company Number: FR-ROCHE-1024381

PATIENT
  Sex: Male

DRUGS (7)
  1. AVASTIN [Suspect]
     Indication: RENAL CANCER
     Route: 042
     Dates: start: 20111108, end: 20111108
  2. ALLOPURINOL [Concomitant]
     Route: 048
  3. CANDESARTAN CILEXETIL [Concomitant]
     Indication: HYPERTENSION
     Route: 048
  4. PREVISCAN (FRANCE) [Concomitant]
     Route: 048
  5. PROSCAR [Concomitant]
     Route: 048
  6. ROFERON-A [Suspect]
     Indication: RENAL CANCER
     Route: 042
     Dates: start: 20111024, end: 20111121
  7. TEMERIT [Concomitant]
     Indication: HYPERTENSION
     Route: 048

REACTIONS (12)
  - ANAEMIA [None]
  - CARDIAC FAILURE [None]
  - BACTERIAL PYELONEPHRITIS [None]
  - GAMMA-GLUTAMYLTRANSFERASE INCREASED [None]
  - PULMONARY OEDEMA [None]
  - HYPONATRAEMIA [None]
  - RENAL FAILURE [None]
  - LYMPHOPENIA [None]
  - HYPERKALAEMIA [None]
  - POSTERIOR REVERSIBLE ENCEPHALOPATHY SYNDROME [None]
  - KLEBSIELLA INFECTION [None]
  - BLOOD ALKALINE PHOSPHATASE INCREASED [None]
